FAERS Safety Report 5145075-X (Version None)
Quarter: 2006Q4

REPORT INFORMATION
  Report Type: 
  Country: None (occurrence: None)
  Receive Date: 20061107
  Receipt Date: 20061030
  Transmission Date: 20070319
  Serious: Yes (Hospitalization, Other)
  Sender: FDA-Public Use
  Company Number: FR-BRISTOL-MYERS SQUIBB COMPANY-13561493

PATIENT
  Age: 32 Year
  Sex: Female

DRUGS (6)
  1. SUSTIVA [Suspect]
     Indication: HIV INFECTION
     Route: 048
     Dates: start: 20051124, end: 20051216
  2. VIREAD [Suspect]
     Indication: HIV INFECTION
     Route: 048
     Dates: start: 20051124, end: 20051216
  3. EMTRIVA [Suspect]
     Indication: HIV INFECTION
     Route: 048
     Dates: start: 20051124, end: 20051216
  4. RIFAMPICIN [Suspect]
     Indication: BACTERIAL INFECTION
     Route: 048
     Dates: start: 20051109, end: 20051216
  5. ZECLAR [Suspect]
     Indication: BACTERIAL INFECTION
     Route: 048
     Dates: start: 20051115
  6. BACTRIM [Suspect]
     Route: 048
     Dates: start: 20051115

REACTIONS (3)
  - BLOOD BILIRUBIN INCREASED [None]
  - GRANULOMATOUS LIVER DISEASE [None]
  - HEPATIC ENZYME INCREASED [None]
